FAERS Safety Report 4556957-1 (Version None)
Quarter: 2005Q1

REPORT INFORMATION
  Report Type: 
  Country: None (occurrence: None)
  Receive Date: 20050118
  Receipt Date: 20050113
  Transmission Date: 20050727
  Serious: Yes (Disabling)
  Sender: FDA-Public Use
  Company Number: 200410588BYL

PATIENT
  Age: 90 Year
  Sex: Male
  Weight: 44 kg

DRUGS (6)
  1. ASPIRIN [Suspect]
     Indication: CEREBRAL INFARCTION
     Dosage: 100 MG ,  QD, ORAL
     Route: 048
     Dates: start: 20010101, end: 20040823
  2. SERMION [Concomitant]
  3. TOLEDOMIN [Concomitant]
  4. PURSENNIDE [Concomitant]
  5. HALCION [Concomitant]
  6. ALINAMIN F [Concomitant]

REACTIONS (2)
  - CEREBRAL HAEMORRHAGE [None]
  - DEPRESSED LEVEL OF CONSCIOUSNESS [None]
